FAERS Safety Report 9393387 (Version 1)
Quarter: 2013Q3

REPORT INFORMATION
  Report Type: Spontaneous
  Country: GB (occurrence: None)
  Receive Date: 20130705
  Receipt Date: 20130705
  Transmission Date: 20140515
  Serious: Yes (Hospitalization)
  Sender: FDA-Public Use
  Company Number: GB-023364

PATIENT
  Age: 65 Year
  Sex: Female

DRUGS (10)
  1. CHLORAMBUCIL [Suspect]
     Indication: CHRONIC LYMPHOCYTIC LEUKAEMIA
     Dosage: (DAY 1-7, EVERY 28 DAY CYCLE)??
     Route: 048
     Dates: start: 20080701
  2. MABTHERA [Suspect]
     Indication: CHRONIC LYMPHOCYTIC LEUKAEMIA
     Dosage: INTRAVENOUS, (NOT OTHERWISE SPECIFIED)?
     Route: 042
     Dates: start: 20080701
  3. LISINOPRIL (LISINOPRIL) [Concomitant]
  4. AMLODIPINE (AMLODIPINE) [Concomitant]
  5. BENDROFLUAZIDE (BENDROFLUMETHIAZIDE) [Concomitant]
  6. LANTUS (INSULIN GLARGINE) [Concomitant]
  7. NOVORAPID (INSULIN ASPART) [Concomitant]
  8. PINE BARK (OTHERS) [Concomitant]
  9. LANSOPRAZOLE (LANSOPRAZOLE) [Concomitant]
  10. PRAVASIN (PRAVASTATIN) [Concomitant]

REACTIONS (6)
  - Pneumonia [None]
  - Pneumonia [None]
  - Nausea [None]
  - Vomiting [None]
  - Chest pain [None]
  - Haemophilus test positive [None]
